FAERS Safety Report 5135900-0 (Version None)
Quarter: 2006Q4

REPORT INFORMATION
  Report Type: 
  Country: None (occurrence: None)
  Receive Date: 20061020
  Receipt Date: 20061007
  Transmission Date: 20070319
  Serious: Yes (Other)
  Sender: FDA-Public Use
  Company Number: 2006SP004012

PATIENT
  Age: 40 Year
  Sex: Female
  Weight: 65.318 kg

DRUGS (3)
  1. INTRON A [Suspect]
     Indication: HEPATITIS C
     Dates: start: 20060105
  2. REBETOL [Suspect]
     Indication: HEPATITIS C
     Dosage: PO
     Route: 048
     Dates: start: 20060105
  3. FLEXERIL [Concomitant]

REACTIONS (9)
  - ASTHENIA [None]
  - DRUG INEFFECTIVE [None]
  - FEELING ABNORMAL [None]
  - HEART RATE INCREASED [None]
  - MOUTH ULCERATION [None]
  - OPEN WOUND [None]
  - SCIATICA [None]
  - ULCER [None]
  - UNEVALUABLE EVENT [None]
